FAERS Safety Report 7752382-0 (Version None)
Quarter: 2011Q3

REPORT INFORMATION
  Report Type: 
  Country: None (occurrence: None)
  Receive Date: 20110915
  Receipt Date: 20110907
  Transmission Date: 20111222
  Serious: Yes (Other)
  Sender: FDA-Public Use
  Company Number: FR-AMGEN-FRASP2011021464

PATIENT
  Age: 36 Year
  Sex: Female

DRUGS (3)
  1. ENBREL [Suspect]
     Dosage: 25 MG, WEEKLY
     Dates: start: 20110501, end: 20110601
  2. ENBREL [Suspect]
     Indication: ANKYLOSING SPONDYLITIS
     Dosage: 50 MG, WEEKLY
     Dates: start: 20090101, end: 20110501
  3. CYMBALTA [Concomitant]
     Dosage: UNK UNK, UNK

REACTIONS (2)
  - CERVICAL DYSPLASIA [None]
  - AMENORRHOEA [None]
